FAERS Safety Report 8391565-6 (Version None)
Quarter: 2012Q1

REPORT INFORMATION
  Report Type: 
  Country: None (occurrence: None)
  Receive Date: 20120323
  Receipt Date: 20110708
  Transmission Date: 20120608
  Serious: Yes (Hospitalization)
  Sender: FDA-Public Use
  Company Number: 163-21880-11031313

PATIENT
  Sex: Female

DRUGS (2)
  1. REVLIMID [Suspect]
     Indication: MULTIPLE MYELOMA
     Dosage: 15 MG, DAILY X 21 DAYS/ OFF 7 DAYS, PO
     Route: 048
     Dates: start: 20070201, end: 20100801
  2. REVLIMID [Suspect]
     Indication: MULTIPLE MYELOMA
     Dosage: 15 MG, DAILY X 21 DAYS/ OFF 7 DAYS, PO
     Route: 048
     Dates: start: 20110201

REACTIONS (9)
  - MUSCLE SPASMS [None]
  - PAIN IN EXTREMITY [None]
  - VIRAL INFECTION [None]
  - ARTHRALGIA [None]
  - BRONCHITIS [None]
  - PYREXIA [None]
  - INSOMNIA [None]
  - NIGHTMARE [None]
  - HYPERHIDROSIS [None]
